FAERS Safety Report 8164592-1 (Version None)
Quarter: 2012Q1

REPORT INFORMATION
  Report Type: 
  Country: None (occurrence: None)
  Receive Date: 20120227
  Receipt Date: 20120213
  Transmission Date: 20120608
  Serious: Yes (Other)
  Sender: FDA-Public Use
  Company Number: BR-AMGEN-BRACT2011056898

PATIENT
  Age: 57 Year
  Sex: Female
  Weight: 46 kg

DRUGS (7)
  1. HYDROXYCHLOROQUINE SULFATE [Concomitant]
     Dosage: 400 MG, 1X/DAY, 1 TABLET IN THE MORNING
  2. METHOTREXATE [Concomitant]
     Indication: RHEUMATOID ARTHRITIS
     Dosage: UNK
  3. ENBREL [Suspect]
     Indication: RHEUMATOID ARTHRITIS
     Dosage: 25MG, 2X/WEEK
     Route: 058
     Dates: start: 20110201
  4. ENBREL [Suspect]
     Dosage: 50 MG, WEEKLY
     Route: 058
     Dates: start: 20120213
  5. METHOTREXATE [Concomitant]
     Dosage: 3 TABLETS IN THE LUNCH AND 3 TABLETS IN THE DINNER
     Dates: start: 20111001
  6. HYDROXYCHLOROQUINE SULFATE [Concomitant]
     Indication: RHEUMATOID ARTHRITIS
     Dosage: UNK
  7. CORTISONE ACETATE [Concomitant]

REACTIONS (5)
  - FORMICATION [None]
  - DIZZINESS [None]
  - MALAISE [None]
  - INFECTION [None]
  - KNEE ARTHROPLASTY [None]
